FAERS Safety Report 5458162-3 (Version None)
Quarter: 2007Q3

REPORT INFORMATION
  Report Type: 
  Country: None (occurrence: None)
  Receive Date: 20070917
  Receipt Date: 20070906
  Transmission Date: 20080115
  Serious: Yes (Other)
  Sender: FDA-Public Use
  Company Number: 2007330089

PATIENT
  Sex: Female

DRUGS (1)
  1. ROGAINE [Suspect]
     Dosage: 2 TIMES, TOPICAL
     Route: 061
     Dates: start: 20070101, end: 20070101

REACTIONS (4)
  - BALANCE DISORDER [None]
  - DYSPNOEA [None]
  - MALAISE [None]
  - PALPITATIONS [None]
